FAERS Safety Report 10521552 (Version 1)
Quarter: 2014Q4

REPORT INFORMATION
  Report Type: Spontaneous
  Country: US (occurrence: None)
  Receive Date: 20141014
  Receipt Date: 20141014
  Transmission Date: 20150528
  Serious: Yes (Death)
  Sender: FDA-Public Use
  Company Number: 2574304

PATIENT

DRUGS (2)
  1. HEPARIN SODIUM. [Suspect]
     Active Substance: HEPARIN SODIUM
     Indication: ANTICOAGULANT THERAPY
     Route: 042
  2. (ALTEPLASE) [Suspect]
     Active Substance: ALTEPLASE
     Indication: THROMBOLYSIS
     Route: 013

REACTIONS (2)
  - Haemorrhage intracranial [None]
  - Anticoagulation drug level above therapeutic [None]
